FAERS Safety Report 12628433 (Version 1)
Quarter: 2016Q3

REPORT INFORMATION
  Report Type: Spontaneous
  Country: US (occurrence: None)
  Receive Date: 20160805
  Receipt Date: 20160805
  Transmission Date: 20161109
  Serious: Yes (Disabling)
  Sender: FDA-Public Use
  Company Number: None

PATIENT
  Age: 59 Year
  Sex: Male
  Weight: 94.8 kg

DRUGS (3)
  1. VITAMIN D SUPP [Concomitant]
  2. BYSTOLIC [Concomitant]
     Active Substance: NEBIVOLOL HYDROCHLORIDE
  3. METOPROLOL SUCC [Suspect]
     Active Substance: METOPROLOL SUCCINATE
     Indication: HYPERTENSION
     Dosage: 1 PER DAY, LATER CHANGED TO 2 PER DAY TWICE DAILY BY MOUTH
     Route: 048
     Dates: start: 20151118, end: 20160718

REACTIONS (1)
  - Libido decreased [None]

NARRATIVE: CASE EVENT DATE: 201511
